FAERS Safety Report 17967787 (Version 1)
Quarter: 2020Q3

REPORT INFORMATION
  Report Type: Spontaneous
  Country: GB (occurrence: GB)
  Receive Date: 20200701
  Receipt Date: 20200701
  Transmission Date: 20201103
  Serious: Yes (Other)
  Sender: FDA-Public Use
  Company Number: GB-MYLANLABS-2020M1060410

PATIENT
  Age: 37 Year
  Sex: Male

DRUGS (2)
  1. CLOZARIL [Suspect]
     Active Substance: CLOZAPINE
     Indication: SCHIZOPHRENIA
     Dosage: 200MG MORNING AND 550MG NIGHT
     Route: 048
     Dates: start: 20181008
  2. CLOZARIL [Suspect]
     Active Substance: CLOZAPINE
     Dosage: 150MG MORNING 200MG AFTERNOON AND 300MG NIGHT
     Route: 048
     Dates: start: 202006

REACTIONS (4)
  - Product dose omission issue [Unknown]
  - Suspected COVID-19 [Unknown]
  - Body temperature increased [Unknown]
  - Schizophrenia [Unknown]

NARRATIVE: CASE EVENT DATE: 202006
